FAERS Safety Report 7231155-1 (Version None)
Quarter: 2011Q1

REPORT INFORMATION
  Report Type: 
  Country: None (occurrence: None)
  Receive Date: 20110118
  Receipt Date: 20110103
  Transmission Date: 20110831
  Serious: Yes (Hospitalization, Congenital Anomaly)
  Sender: FDA-Public Use
  Company Number: A0699572A

PATIENT
  Sex: Female

DRUGS (6)
  1. THYROID MEDICATION [Concomitant]
  2. ZOFRAN [Concomitant]
  3. PROPYLTHIOURACIL [Concomitant]
  4. PAXIL [Suspect]
  5. PRENATAL VITAMINS [Concomitant]
  6. METOPROLOL [Concomitant]

REACTIONS (4)
  - VENTRICULAR SEPTAL DEFECT [None]
  - DRUG EXPOSURE DURING PREGNANCY [None]
  - ATRIAL SEPTAL DEFECT [None]
  - HEART DISEASE CONGENITAL [None]
